FAERS Safety Report 16917879 (Version 1)
Quarter: 2019Q4

REPORT INFORMATION
  Report Type: Spontaneous
  Country: JP (occurrence: JP)
  Receive Date: 20191015
  Receipt Date: 20191015
  Transmission Date: 20200122
  Serious: Yes (Other)
  Sender: FDA-Public Use
  Company Number: JP-SA-2019SA279458

PATIENT
  Age: 50 Year
  Sex: Male

DRUGS (5)
  1. ALLEGRA [Suspect]
     Active Substance: FEXOFENADINE HYDROCHLORIDE
     Indication: PRODUCT USED FOR UNKNOWN INDICATION
     Route: 048
  2. MUCODYNE [Concomitant]
     Active Substance: CARBOCYSTEINE
     Indication: PRODUCT USED FOR UNKNOWN INDICATION
     Route: 065
  3. MEDICON A [Concomitant]
     Indication: PRODUCT USED FOR UNKNOWN INDICATION
     Route: 065
  4. TEPRENONE [Concomitant]
     Active Substance: TEPRENONE
     Indication: PRODUCT USED FOR UNKNOWN INDICATION
     Route: 048
  5. CRAVIT [Concomitant]
     Active Substance: LEVOFLOXACIN
     Indication: PRODUCT USED FOR UNKNOWN INDICATION
     Route: 065

REACTIONS (9)
  - Oropharyngeal pain [Recovered/Resolved]
  - Stevens-Johnson syndrome [Recovered/Resolved]
  - Lip erosion [Recovered/Resolved]
  - Conjunctival hyperaemia [Recovered/Resolved]
  - Stomatitis [Recovered/Resolved]
  - Pharyngeal erosion [Recovered/Resolved]
  - Feeding disorder [Recovered/Resolved]
  - Oral mucosa erosion [Recovered/Resolved]
  - Nasal mucosal erosion [Recovered/Resolved]
